FAERS Safety Report 6370885-0 (Version None)
Quarter: 2009Q3

REPORT INFORMATION
  Report Type: 
  Country: None (occurrence: None)
  Receive Date: 20090921
  Receipt Date: 20090921
  Transmission Date: 20100115
  Serious: Yes (Hospitalization)
  Sender: FDA-Public Use
  Company Number: None

PATIENT
  Age: 38 Year
  Sex: Male
  Weight: 77.1115 kg

DRUGS (2)
  1. COMPAZINE [Suspect]
     Indication: NAUSEA
     Dosage: 1X SUPP.
     Dates: start: 20090722
  2. COMPAZINE [Suspect]
     Indication: NEPHROLITHIASIS
     Dosage: 1X SUPP.
     Dates: start: 20090722

REACTIONS (1)
  - ATRIAL FIBRILLATION [None]
